FAERS Safety Report 12737362 (Version 1)
Quarter: 2016Q3

REPORT INFORMATION
  Report Type: Spontaneous
  Country: US (occurrence: US)
  Receive Date: 20160912
  Receipt Date: 20160912
  Transmission Date: 20161109
  Serious: Yes (Other)
  Sender: FDA-Public Use
  Company Number: None

PATIENT
  Age: 59 Year
  Sex: Male
  Weight: 78.75 kg

DRUGS (1)
  1. NIX ULTRA [Suspect]
     Active Substance: DIMETHICONE\MINERAL OIL

REACTIONS (1)
  - Product label issue [None]
